FAERS Safety Report 14601441 (Version 2)
Quarter: 2018Q2

REPORT INFORMATION
  Report Type: Spontaneous
  Country: US (occurrence: US)
  Receive Date: 20180305
  Receipt Date: 20180415
  Transmission Date: 20180711
  Serious: No
  Sender: FDA-Public Use
  Company Number: PHHY2018US032272

PATIENT
  Sex: Male
  Weight: 86.18 kg

DRUGS (2)
  1. SYSTANE ULTRA [Suspect]
     Active Substance: POLYETHYLENE GLYCOL 400\PROPYLENE GLYCOL
     Indication: DRY EYE
     Dosage: 1 GTT, UNK
     Route: 047
     Dates: start: 20180207, end: 20180222
  2. SYSTANE ULTRA [Suspect]
     Active Substance: POLYETHYLENE GLYCOL 400\PROPYLENE GLYCOL
     Dosage: 1 GTT, UNK
     Route: 047
     Dates: start: 20180207, end: 20180227

REACTIONS (5)
  - Product dropper issue [Unknown]
  - Accidental exposure to product [Unknown]
  - Vision blurred [Recovering/Resolving]
  - Product package associated injury [Unknown]
  - Ocular hyperaemia [Recovering/Resolving]
